FAERS Safety Report 5422014-5 (Version None)
Quarter: 2007Q3

REPORT INFORMATION
  Report Type: 
  Country: None (occurrence: None)
  Receive Date: 20070822
  Receipt Date: 20070821
  Transmission Date: 20080115
  Serious: Yes (Other)
  Sender: FDA-Public Use
  Company Number: US-BAYER-200711579BWH

PATIENT
  Age: 57 Year
  Sex: Female

DRUGS (2)
  1. CIPRO [Suspect]
     Indication: DIARRHOEA
     Route: 048
     Dates: start: 20070301
  2. CIPRO [Suspect]
     Dosage: TOTAL DAILY DOSE: 1000 MG
     Route: 048
     Dates: end: 20070401

REACTIONS (4)
  - ALVEOLITIS ALLERGIC [None]
  - COLITIS [None]
  - DIARRHOEA [None]
  - DYSPNOEA [None]
